FAERS Safety Report 26132213 (Version 1)
Quarter: 2025Q4

REPORT INFORMATION
  Report Type: Report from Study
  Country: CN (occurrence: CN)
  Receive Date: 20251208
  Receipt Date: 20251208
  Transmission Date: 20260117
  Serious: Yes (Hospitalization)
  Sender: ABBVIE
  Company Number: CN-ABBVIE-6576073

PATIENT
  Age: 41 Year
  Sex: Male

DRUGS (2)
  1. UPADACITINIB [Suspect]
     Active Substance: UPADACITINIB
     Indication: Crohn^s disease
     Route: 048
     Dates: start: 20250905
  2. METRONIDAZOLE [Concomitant]
     Active Substance: METRONIDAZOLE
     Indication: Product used for unknown indication

REACTIONS (5)
  - Gastrointestinal wall thickening [Unknown]
  - Crohn^s disease [Unknown]
  - Stenosis [Unknown]
  - Obstruction [Unknown]
  - Focal peritonitis [Unknown]

NARRATIVE: CASE EVENT DATE: 20251104
